FAERS Safety Report 4290469-8 (Version None)
Quarter: 2004Q1

REPORT INFORMATION
  Report Type: 
  Country: None (occurrence: None)
  Receive Date: 20040209
  Receipt Date: 20040129
  Transmission Date: 20041129
  Serious: Yes (Life-Threatening)
  Sender: FDA-Public Use
  Company Number: 200410069BNE

PATIENT
  Age: 81 Year
  Sex: Male

DRUGS (5)
  1. ASPIRIN [Suspect]
     Indication: PERIPHERAL VASCULAR DISORDER
     Dosage: 75 MG, TOTAL DAILY, ORAL
     Route: 048
     Dates: start: 20040112, end: 20040115
  2. DALTEPARIN (DALTEPARIN SODIUM) [Suspect]
     Indication: DEEP VENOUS THROMBOSIS PROPHYLAXIS
     Dosage: 2500 U, TOTAL DAILY, SUBCUTANEOUS
     Route: 058
     Dates: start: 20040112
  3. DIGOXIN [Concomitant]
  4. INSULATARD NPH HUMAN [Concomitant]
  5. FERROUS SULFATE ANHYDROUS [Concomitant]

REACTIONS (2)
  - HAEMATEMESIS [None]
  - REFLUX OESOPHAGITIS [None]
